FAERS Safety Report 6582644-4 (Version None)
Quarter: 2010Q1

REPORT INFORMATION
  Report Type: 
  Country: None (occurrence: None)
  Receive Date: 20100216
  Receipt Date: 20100204
  Transmission Date: 20100710
  Serious: Yes (Congenital Anomaly)
  Sender: FDA-Public Use
  Company Number: FR-ELI_LILLY_AND_COMPANY-FR201002001031

PATIENT

DRUGS (3)
  1. PROZAC [Suspect]
     Dosage: 8 D/F, UNK
     Route: 064
  2. URIDOZ [Concomitant]
     Dosage: 1 D/F, UNK
     Route: 064
  3. LEXOMIL [Concomitant]
     Dosage: UNK, UNKNOWN
     Route: 064

REACTIONS (4)
  - CONGENITAL HAND MALFORMATION [None]
  - DRUG EXPOSURE DURING PREGNANCY [None]
  - MATERNAL DRUGS AFFECTING FOETUS [None]
  - PHALANGEAL AGENESIS [None]
